FAERS Safety Report 25685820 (Version 1)
Quarter: 2025Q3

REPORT INFORMATION
  Report Type: Spontaneous
  Country: US (occurrence: US)
  Receive Date: 20250815
  Receipt Date: 20250815
  Transmission Date: 20251020
  Serious: Yes (Other)
  Sender: COOPERSURGICAL
  Company Number: US-COOPERSURGICAL, INC.-2025CPS005962

PATIENT
  Age: 41 Year
  Sex: Female
  Weight: 104.31 kg

DRUGS (2)
  1. PARAGARD T 380A [Suspect]
     Active Substance: COPPER
     Indication: Contraception
     Route: 015
     Dates: start: 20090413
  2. VALSARTAN [Concomitant]
     Active Substance: VALSARTAN
     Dates: start: 200207

REACTIONS (11)
  - Reproductive complication associated with device [Not Recovered/Not Resolved]
  - Infertility female [Not Recovered/Not Resolved]
  - Device breakage [Recovered/Resolved]
  - Foreign body in reproductive tract [Recovered/Resolved]
  - Complication of device removal [Recovered/Resolved]
  - Embedded device [Recovered/Resolved]
  - Perineal pain [Unknown]
  - Abnormal uterine bleeding [Unknown]
  - Menstruation irregular [Not Recovered/Not Resolved]
  - Vaginal infection [Unknown]
  - Pelvic pain [Unknown]

NARRATIVE: CASE EVENT DATE: 20181001
